FAERS Safety Report 13765370 (Version 3)
Quarter: 2017Q3

REPORT INFORMATION
  Report Type: Report from Study
  Country: US (occurrence: BR)
  Receive Date: 20170718
  Receipt Date: 20170908
  Transmission Date: 20171127
  Serious: Yes (Life-Threatening, Hospitalization, Other)
  Sender: FDA-Public Use
  Company Number: US-SUNOVION-2017SUN003140

PATIENT
  Sex: Female
  Weight: 78 kg

DRUGS (5)
  1. INDACATEROL AND GLYCOPYRROLATE [Suspect]
     Active Substance: GLYCOPYRROLATE\INDACATEROL MALEATE
     Indication: EMPHYSEMA
     Dosage: 1 DF (INDACATEROL 110 UG/ GLYCOPYRRONIUM BROMIDE 50 UG), QD
     Route: 055
     Dates: start: 201706
  2. BAMIFIX [Concomitant]
     Active Substance: BAMIFYLLINE HYDROCHLORIDE
     Dosage: 400 MG, QD
  3. SALBUTAMOL [Concomitant]
     Active Substance: ALBUTEROL
  4. CORTICOSTEROID NOS [Concomitant]
     Active Substance: CORTICOSTEROID NOS
     Indication: EMPHYSEMA
  5. OXIMAX [Concomitant]
     Active Substance: MOMETASONE FUROATE
     Dosage: 400 MG, QD
     Dates: start: 20170717

REACTIONS (18)
  - Cardiac disorder [Unknown]
  - Aphthous ulcer [Unknown]
  - Lung disorder [Unknown]
  - Fatigue [Unknown]
  - Fear [Unknown]
  - Dry mouth [Unknown]
  - Nasal dryness [Unknown]
  - Gait disturbance [Unknown]
  - Rheumatoid arthritis [Unknown]
  - Depression [Unknown]
  - Toxicity to various agents [Unknown]
  - Drug effect decreased [Unknown]
  - Pyrexia [Unknown]
  - Malaise [Unknown]
  - Emphysema [Unknown]
  - Apparent death [Unknown]
  - Hypersensitivity [Recovering/Resolving]
  - Erythema [Unknown]
